FAERS Safety Report 16636096 (Version 2)
Quarter: 2019Q3

REPORT INFORMATION
  Report Type: Spontaneous
  Country: US (occurrence: US)
  Receive Date: 20190726
  Receipt Date: 20190809
  Transmission Date: 20191004
  Serious: No
  Sender: FDA-Public Use
  Company Number: US-PFIZER INC-2018524570

PATIENT
  Age: 51 Year
  Sex: Female

DRUGS (26)
  1. ONDANSETRON [Concomitant]
     Active Substance: ONDANSETRON
     Dosage: UNK
     Dates: start: 2016, end: 2016
  2. ALBUTEROL. [Concomitant]
     Active Substance: ALBUTEROL
     Dosage: UNK
     Dates: start: 1999
  3. BRIMONIDINE/TIMOLOL [Concomitant]
     Dosage: UNK [2-5 %]
     Dates: start: 2010
  4. ARNUITY ELLIPTA [Concomitant]
     Active Substance: FLUTICASONE FUROATE
     Dosage: UNK
     Dates: start: 2013
  5. VOLTAREN [Concomitant]
     Active Substance: DICLOFENAC SODIUM
     Dosage: UNK
     Dates: start: 2016
  6. DIPHENHYDRAMINE. [Concomitant]
     Active Substance: DIPHENHYDRAMINE
     Dosage: DIPHENHYDRAMINE-LIDOCAINE-ALUMINUM AND MAGNESIUM HYDROXIDE-SIMETHICONE (1:1:1)
     Dates: start: 2016, end: 2016
  7. LIDOCAINE. [Concomitant]
     Active Substance: LIDOCAINE
     Dosage: DIPHENHYDRAMINE-LIDOCAINE-ALUMINUM AND MAGNESIUM HYDROXIDE-SIMETHICONE (1:1:1)
     Dates: start: 2016, end: 2016
  8. ALUMINIUM HYDROXIDE/MAGNESIUM HYDROXIDE [Concomitant]
     Dosage: DIPHENHYDRAMINE-LIDOCAINE-ALUMINUM AND MAGNESIUM HYDROXIDE-SIMETHICONE (1:1:1)
     Dates: start: 2016, end: 2016
  9. SIMETHICONE (DIMETHICONE) [Concomitant]
     Active Substance: DIMETHICONE
     Dosage: DIPHENHYDRAMINE-LIDOCAINE-ALUMINUM AND MAGNESIUM HYDROXIDE-SIMETHICONE (1:1:1)
     Dates: start: 2016, end: 2016
  10. HYDROCODONE;ACETAMINOPHEN [Concomitant]
     Dosage: UNK
     Dates: start: 2016
  11. LIDOCAINE VISCOUS [Concomitant]
     Active Substance: LIDOCAINE HYDROCHLORIDE
     Dosage: 2 %, UNK (SOLUTION)
     Dates: start: 2016, end: 2016
  12. NOVOLOG [Concomitant]
     Active Substance: INSULIN ASPART
     Dosage: UNK
     Dates: start: 2016
  13. ATORVASTATIN [Concomitant]
     Active Substance: ATORVASTATIN
     Dosage: UNK
     Dates: start: 2006
  14. AMPHETAMINE-DEXTROAMPHETAMINE [Concomitant]
     Active Substance: AMPHETAMINE SULFATE\DEXTROAMPHETAMINE
     Dosage: UNK
     Dates: start: 2011
  15. FLUOXETINE [Concomitant]
     Active Substance: FLUOXETINE HYDROCHLORIDE
     Dosage: UNK
     Dates: start: 2013
  16. LORAZEPAM. [Concomitant]
     Active Substance: LORAZEPAM
     Dosage: UNK
     Dates: start: 2009
  17. INSULIN GLARGINE [Concomitant]
     Active Substance: INSULIN GLARGINE
     Dosage: UNK
     Dates: start: 2016
  18. GABAPENTIN. [Concomitant]
     Active Substance: GABAPENTIN
     Dosage: UNK
     Dates: start: 1998
  19. TAXOTERE [Suspect]
     Active Substance: DOCETAXEL
     Indication: BREAST CANCER FEMALE
     Dosage: UNK, CYCLIC [EVERY 3 WEEKS FOR 4 CYCLES]
     Dates: start: 201602, end: 201606
  20. BUPROPION. [Concomitant]
     Active Substance: BUPROPION
     Dosage: UNK
     Dates: start: 2013
  21. CLOPIDOGREL [Concomitant]
     Active Substance: CLOPIDOGREL BISULFATE
     Dosage: UNK
     Dates: start: 2005
  22. DOCETAXEL. [Suspect]
     Active Substance: DOCETAXEL
     Indication: BREAST CANCER FEMALE
     Dosage: UNK, CYCLIC [EVERY 3 WEEKS FOR 4 CYCLES]
  23. PRAZOSIN. [Concomitant]
     Active Substance: PRAZOSIN
     Dosage: UNK
     Dates: start: 2010
  24. TROPICAMIDE. [Concomitant]
     Active Substance: TROPICAMIDE
     Dosage: UNK
     Dates: start: 2012, end: 2012
  25. OXYCODONE [Concomitant]
     Active Substance: OXYCODONE
     Dosage: UNK
     Dates: start: 2016, end: 2016
  26. METFORMIN [Concomitant]
     Active Substance: METFORMIN HYDROCHLORIDE
     Dosage: UNK
     Dates: start: 1990

REACTIONS (7)
  - Alopecia [Not Recovered/Not Resolved]
  - Hair disorder [Not Recovered/Not Resolved]
  - Madarosis [Not Recovered/Not Resolved]
  - Hair colour changes [Not Recovered/Not Resolved]
  - Dermal cyst [Not Recovered/Not Resolved]
  - Anxiety [Unknown]
  - Hair texture abnormal [Not Recovered/Not Resolved]

NARRATIVE: CASE EVENT DATE: 2014
